FAERS Safety Report 16663911 (Version 1)
Quarter: 2019Q3

REPORT INFORMATION
  Report Type: Report from Study
  Country: DE (occurrence: DE)
  Receive Date: 20190802
  Receipt Date: 20190802
  Transmission Date: 20191004
  Serious: Yes (Hospitalization)
  Sender: FDA-Public Use
  Company Number: DE-GLAXOSMITHKLINE-DE2019GSK137103

PATIENT
  Age: 26 Year
  Sex: Female
  Weight: 116 kg

DRUGS (8)
  1. MEPOLIZUMAB [Suspect]
     Active Substance: MEPOLIZUMAB
     Indication: ASTHMA
     Dosage: 10 MG, CYC
     Route: 058
     Dates: start: 20190108
  2. FORMOTEROL [Concomitant]
     Active Substance: FORMOTEROL
     Dosage: 20 MCG/MG, BID
     Dates: end: 2019
  3. BECLOMETHASONE [Concomitant]
     Active Substance: BECLOMETHASONE
     Dosage: 400 MCG/MG, BID
     Dates: start: 2019
  4. SPIRIVA RESPIMAT [Concomitant]
     Active Substance: TIOTROPIUM BROMIDE
     Indication: ASTHMA
     Dosage: UNK
  5. PREDNISOLON [Concomitant]
     Active Substance: PREDNISOLONE
     Dosage: 20 MG, QD
     Dates: end: 20190505
  6. FLUTICASONE. [Concomitant]
     Active Substance: FLUTICASONE
     Dosage: 500 MCG/MG, BID
     Dates: end: 2019
  7. SALBUTAMOL [Concomitant]
     Active Substance: ALBUTEROL
     Indication: ASTHMA
     Dosage: UNK
     Dates: end: 2019
  8. FORMOTEROL [Concomitant]
     Active Substance: FORMOTEROL
     Dosage: 12 MCG/MG, BID
     Dates: start: 2019

REACTIONS (1)
  - Asthma [Recovered/Resolved]

NARRATIVE: CASE EVENT DATE: 20190506
